FAERS Safety Report 8662924 (Version 4)
Quarter: 2013Q2

REPORT INFORMATION
  Report Type: Report from Study
  Country: CA (occurrence: CA)
  Receive Date: 20120712
  Receipt Date: 20130506
  Transmission Date: 20140414
  Serious: Yes (Death, Other)
  Sender: FDA-Public Use
  Company Number: CA-ROCHE-1085771

PATIENT
  Age: 48 Year
  Sex: Male
  Weight: 80 kg

DRUGS (11)
  1. ACTEMRA [Suspect]
     Indication: UNDIFFERENTIATED CONNECTIVE TISSUE DISEASE
     Route: 042
     Dates: start: 20120501, end: 20120612
  2. ACTEMRA [Suspect]
     Indication: OFF LABEL USE
     Route: 042
     Dates: start: 20120612
  3. ACTEMRA [Suspect]
     Indication: RHEUMATOID ARTHRITIS
     Route: 042
  4. CELLCEPT [Suspect]
     Indication: PRODUCT USED FOR UNKNOWN INDICATION
     Route: 065
  5. CODEINE [Concomitant]
  6. PREDNISONE [Concomitant]
  7. RANITIDINE [Concomitant]
  8. ASPIRIN [Concomitant]
  9. CALCIUM D 500 [Concomitant]
  10. ACTONEL [Concomitant]
  11. SULFATRIM [Concomitant]

REACTIONS (3)
  - Pulmonary embolism [Fatal]
  - Granuloma [Unknown]
  - Xanthogranuloma [Recovered/Resolved]
